FAERS Safety Report 8054818-7 (Version None)
Quarter: 2012Q1

REPORT INFORMATION
  Report Type: 
  Country: None (occurrence: None)
  Receive Date: 20120119
  Receipt Date: 20120110
  Transmission Date: 20120608
  Serious: Yes (Other)
  Sender: FDA-Public Use
  Company Number: US-JNJFOC-20111202713

PATIENT
  Sex: Female
  Weight: 53.98 kg

DRUGS (10)
  1. IMURAN [Suspect]
     Indication: CROHN'S DISEASE
     Route: 048
     Dates: start: 20031023
  2. HYDROCHLOROTHIAZIDE [Concomitant]
     Indication: POLYURIA
     Dates: start: 20080401
  3. LORATADINE [Concomitant]
     Indication: MULTIPLE ALLERGIES
     Dates: start: 20090401
  4. REMICADE [Suspect]
     Indication: CROHN'S DISEASE
     Route: 042
     Dates: start: 20030313, end: 20111101
  5. VESICARE [Concomitant]
     Indication: HYPERTONIC BLADDER
     Dates: start: 20080601
  6. ZETIA [Concomitant]
     Indication: BLOOD CHOLESTEROL INCREASED
     Dates: start: 20080401
  7. BENTYL [Concomitant]
     Indication: GASTROINTESTINAL PAIN
     Dates: start: 20080601
  8. PIROXICAM [Concomitant]
     Indication: ANTIINFLAMMATORY THERAPY
     Dates: start: 20080101
  9. TRAZODONE HYDROCHLORIDE [Concomitant]
     Indication: ANTIDEPRESSANT THERAPY
     Dates: start: 20080401
  10. ASACOL [Concomitant]
     Indication: PRODUCT USED FOR UNKNOWN INDICATION
     Dates: start: 20070201

REACTIONS (2)
  - BREAST CANCER [None]
  - LARGE INTESTINE PERFORATION [None]
